FAERS Safety Report 10216369 (Version 3)
Quarter: 2014Q3

REPORT INFORMATION
  Report Type: Spontaneous
  Country: BR (occurrence: BR)
  Receive Date: 20140604
  Receipt Date: 20140811
  Transmission Date: 20150326
  Serious: Yes (Hospitalization)
  Sender: FDA-Public Use
  Company Number: BR-PFIZER INC-2014151574

PATIENT
  Age: 59 Year
  Sex: Male
  Weight: 99 kg

DRUGS (4)
  1. CELEBRA [Suspect]
     Active Substance: CELECOXIB
     Indication: SPINAL PAIN
     Dosage: 200MG ONCE DAILY
     Dates: start: 2006, end: 2008
  2. ENALAPRIL [Concomitant]
     Active Substance: ENALAPRIL
     Indication: HYPERTENSION
     Dosage: UNK
  3. MIOSAN [Concomitant]
     Active Substance: CYCLOBENZAPRINE
     Dosage: UNK
  4. CELEBRA [Suspect]
     Active Substance: CELECOXIB
     Dosage: 200 MG, 1X/DAY
     Dates: start: 2014

REACTIONS (4)
  - Road traffic accident [Unknown]
  - Blood triglycerides increased [Unknown]
  - Spinal column injury [Unknown]
  - Spinal osteoarthritis [Unknown]
